FAERS Safety Report 9631014 (Version 1)
Quarter: 2013Q4

REPORT INFORMATION
  Report Type: Spontaneous
  Country: US (occurrence: None)
  Receive Date: 20131015
  Receipt Date: 20131015
  Transmission Date: 20140711
  Serious: Yes (Other)
  Sender: FDA-Public Use
  Company Number: 2013DEPUS00553

PATIENT
  Sex: Female

DRUGS (1)
  1. DEPOCYT(E) (CYTARABINE) LIPOSOME INJECTABLE SUSPENSION [Suspect]
     Indication: LYMPHOMA
     Dates: start: 2013

REACTIONS (5)
  - Spinal pain [None]
  - Dysuria [None]
  - Platelet count decreased [None]
  - Headache [None]
  - Vomiting [None]
